FAERS Safety Report 8364619-8 (Version None)
Quarter: 2012Q2

REPORT INFORMATION
  Report Type: 
  Country: None (occurrence: None)
  Receive Date: 20120516
  Receipt Date: 20120510
  Transmission Date: 20120825
  Serious: Yes (Other)
  Sender: FDA-Public Use
  Company Number: TH-JNJFOC-20120511992

PATIENT

DRUGS (55)
  1. DOXORUBICIN HCL [Suspect]
     Indication: ACUTE LYMPHOCYTIC LEUKAEMIA
     Dosage: ON DAYS 1, 8, CURRENT PROTOCOL, REMISSION INDUCTION
     Route: 042
  2. DOXORUBICIN HCL [Suspect]
     Dosage: ON DAYS 1, 8 AND EXTRA ON DAY 15, PREVIOUS PROTOCOL, RE-INDUCTION
     Route: 042
  3. DOXORUBICIN HCL [Suspect]
     Dosage: IN LOW, STANDARD AND HIGH RISK PATIENTS; DAY 1 (REINDUCTION I, II) AND DAYS 1, 8 (IN REINDUCTION I)
     Route: 042
  4. CYTARABINE [Suspect]
     Indication: ACUTE LYMPHOCYTIC LEUKAEMIA
     Dosage: HD; IN S/H PATIENTS; DAYS 15-16 IN REINDUCTION II; CURRENT PROTOCOL
     Route: 065
  5. METHOTREXATE [Suspect]
     Dosage: AGE DEPENDENT DOSE ON DAY 8,15,29, CURRENT PROTOCOL, CONSOLIDATION
     Route: 037
  6. VINCRISTINE [Suspect]
     Dosage: ON DAYS 1, 8, 15, 22, CURRENT PROTOCOL, REMISSION INDUCTION
     Route: 065
  7. CYTARABINE [Suspect]
     Dosage: EVERY 4 WEEKS, CURRENT PROTOCOL, CONTINUATION
     Route: 065
  8. MERCAPTOPURINE [Suspect]
     Indication: ACUTE LYMPHOCYTIC LEUKAEMIA
     Dosage: DAILY, PREVIOUS PROTOCOL, CONTINUATION PHASE
     Route: 065
  9. MERCAPTOPURINE [Suspect]
     Dosage: DAYS 15-70, CURRENT PROTOCOL, CONSOLIDATION PHASE
     Route: 065
  10. MERCAPTOPURINE [Suspect]
     Dosage: 50-70 MG/M2, DAILY, CURRENT PROTOCOL, CONTINUATION PHASE
     Route: 065
  11. METHOTREXATE [Suspect]
     Dosage: AGE DEPENDENT DOSE ON DAYS 1, 22, PREVIOUS PROTOCOL, RE-INDUCTION PHASE
     Route: 037
  12. METHOTREXATE [Suspect]
     Dosage: WEEKLY; PREVIOUS PROTOCOL; CONTINUATION PHASE
     Route: 065
  13. METHOTREXATE [Suspect]
     Dosage: WEEKLY; CURRENT PROTOCOL; CONTINUATION PHASE
     Route: 065
  14. DOXORUBICIN HCL [Suspect]
     Dosage: IN S/H PATIENTS; EVERY 3 WEEKS DURING FIRST 16 WEEKS, CONTINUATION PHASE,CURRENT PROTOCOL
     Route: 042
  15. VINCRISTINE [Suspect]
     Dosage: EVERY 4 WEEKS, CURRENT PROTOCOL, CONTINUATION PHASE
     Route: 065
  16. ELSPAR [Suspect]
     Dosage: 10,000 U/M2 OR 25,000U/M2 ON DAYS 2,4,6,8,10,12 PREVIOUS PROTOCOL, REINDUCTION
     Route: 030
  17. ELSPAR [Suspect]
     Dosage: 25,000U/M2 WEEKLYDURING FIRST 19 WEEKS; PREVIOUS PROTOCOL; CONTINUATION
     Route: 030
  18. CYTARABINE [Suspect]
     Dosage: ON DAYS 22, 29, 32, PREVIOUS PROTOCOL, REMISSION INDUCTION
     Route: 065
  19. CYTARABINE [Suspect]
     Dosage: DAYS 22,29, 32, PREVIOUS PROTOCOL, RE-INDUCTION
     Route: 065
  20. MERCAPTOPURINE [Suspect]
     Dosage: DAYS 1-14, PREVIOUS PROTOCOL, CONSOLIDATION PHASE
     Route: 065
  21. METHOTREXATE [Suspect]
     Indication: ACUTE LYMPHOCYTIC LEUKAEMIA
     Dosage: AGE DEPENDENT DOSE ON DAYS 1; CURRENT PROTOCOL, RE-INDUCTION PHASE
     Route: 037
  22. METHOTREXATE [Suspect]
     Dosage: L:1.5 G/M2, S: 2G/M2, H: 5 G/M2 EVERY 8 WEEKS DURING 1 YEAR, PREVIOUS PROTOCOL, CONTINUATION PHASE
     Route: 065
  23. COTRIM [Concomitant]
     Indication: ANTIFUNGAL PROPHYLAXIS
     Dosage: FOR 3 CONSECUTIVE D/WK FROM D 15 OF REMISSION INDUCTION TO 12 WKS AFTER COMPL. OF ALL CHEMOTHERAPY
     Route: 065
  24. PREDNISONE [Suspect]
     Dosage: DAYS 1-28, CURRENT PROTOCOL, REMISSION INDUCTION
     Route: 065
  25. PREDNISONE [Suspect]
     Dosage: DAYS 1-29, PREVIOUS PROTOCOL, REMISSION INDUCTION
     Route: 065
  26. CYCLOPHOSPHAMIDE [Suspect]
     Indication: ACUTE LYMPHOCYTIC LEUKAEMIA
     Dosage: STABLE/HIGH, EVERY 4 WEEKS, CURRENT PROTOCOL, CONTINUATION
     Route: 065
  27. METHOTREXATE [Suspect]
     Dosage: L:2.5 G/M2, S/H: 5 G/M2 ON DAYS 1, 15,29,43,57, CURRENT PROTOCOL, CONSOLIDATION PHASE
     Route: 065
  28. LEUCOVORIN CALCIUM [Concomitant]
     Route: 042
  29. ELSPAR [Suspect]
     Dosage: 10,000 U/M2 OR 25, 000U/M2 ON DAYS 2,4,6,8,10,12 PREVIOUS PROTOCOL, REMISSION INDUCTION
     Route: 030
  30. ETOPOSIDE [Suspect]
     Dosage: ON DAYS 22, 29, 32, PREVIOUS PROTOCOL, REMISSION INDUCTION
     Route: 065
  31. CYCLOPHOSPHAMIDE [Suspect]
     Dosage: STABLE/HIGH, EVERY 8 WEEKS, PREVIOUS PROTOCOL, CONTINUATION
     Route: 065
  32. METHOTREXATE [Suspect]
     Dosage: AGE DEPENDENT DOSE ON DAYS 1, 22 (EXTRA 8, 15), PREVIOUS PROTOCOL, REMISSION INDUCTION
     Route: 037
  33. DEXAMETHASONE [Suspect]
     Dosage: LOW RISK 8 MG/M2, 5 DAYS, STABLE/HIGH RISK 12 MG/M2, EVERY 4 WEEKS, CURRENT PROTOCOL, CONTINUATION
     Route: 065
  34. DOXORUBICIN HCL [Suspect]
     Dosage: ON DAYS 1, 8 AND EXTRA ON DAY 15, PREVIOUS PROTOCOL, REMISSION INDUCTION
     Route: 042
  35. VINCRISTINE [Suspect]
     Indication: ACUTE LYMPHOCYTIC LEUKAEMIA
     Dosage: ON DAYS 1, 8, 15, 22, PREVIOUS PROTOCOL, REMISSION INDUCTION
     Route: 065
  36. CYTARABINE [Suspect]
     Dosage: ON DAYS 23-26, 29-32, CURRENT PROTOCOL, REMISSION-INDUCTION
     Route: 065
  37. ETOPOSIDE [Suspect]
     Dosage: EVERY 4 WEEKS, PREVIOUS PROTOCOL, CONTINUATION
     Route: 065
  38. MERCAPTOPURINE [Suspect]
     Dosage: DAYS 22-35, CURRENT PROTOCOL, REMISSION-INDUCTION
     Route: 065
  39. METHOTREXATE [Suspect]
     Dosage: AGE DEPENDENT DOSE ON DAYS 1,8,PREVIOUS PROTOCOL, CONSOLIDATION
     Route: 037
  40. VINCRISTINE [Suspect]
     Dosage: ON DAYS 1, 8, 15, 22, PREVIOUS PROTOCOL, RE-INDUCTION INDUCTION
     Route: 065
  41. VINCRISTINE [Suspect]
     Dosage: EVERY 4 WEEKS, PREVIOUS PROTOCOL, CONTINUATION
     Route: 065
  42. CYTARABINE [Suspect]
     Dosage: HD; IN H PATIENTS; DAYS 43, 44; PREVIOUS PROTOCOL; RE-INDUCTION PHASE
     Route: 065
  43. CYCLOPHOSPHAMIDE [Suspect]
     Dosage: ON DAY 26, CURRENT PROTOCOL, REMISSION-INDUCTION
     Route: 065
  44. METHOTREXATE [Suspect]
     Dosage: AGE DEPENDENT DOSE EVERY 4 WEEKS DURING 1 YEAR CURRENT PROTOCOL, CONTINUATION PHASE
     Route: 037
  45. DEXAMETHASONE [Suspect]
     Indication: ACUTE LYMPHOCYTIC LEUKAEMIA
     Dosage: EVERY 4 WEEKS, PREVIOUS PROTOCOL, CONTINUATION
     Route: 065
  46. METHOTREXATE [Suspect]
     Dosage: L:1.5 G/M2, S: 2G/M2, H: 5 G/M2 ON DAYS 1, 8, PREVIOUS PROTOCOL, CONSOLIDATION PHASE
     Route: 065
  47. PREDNISONE [Suspect]
     Indication: ACUTE LYMPHOCYTIC LEUKAEMIA
     Dosage: DAYS 1-29, PREVIOUS PROTOCOL, RE-INDUCTION INDUCTION
     Route: 065
  48. VINCRISTINE [Suspect]
     Dosage: ON DAYS 1, 8, 15, CURRENT PROTOCOL, RE-INDUCTION INDUCTION
     Route: 065
  49. ELSPAR [Suspect]
     Indication: ACUTE LYMPHOCYTIC LEUKAEMIA
     Dosage: 10,000 U/M2 OR 25,000U/M2 THRICE WEEKLY(REINDUCTION I, II), WEEKLY (REINDUCTION I) PREVIOUS PROTOCOL
     Route: 030
  50. ELSPAR [Suspect]
     Dosage: 10,000 U/M2 ON DAYS 2,4,6,8,10,12 (15, 17, 19)CURRENT PROTOCOL, REMISSION INDUCTION
     Route: 030
  51. CYTARABINE [Suspect]
     Dosage: EVERY 8 WEEKS, PREVIOUS PROTOCOL, CONTINUATION
     Route: 065
  52. ETOPOSIDE [Suspect]
     Indication: ACUTE LYMPHOCYTIC LEUKAEMIA
     Dosage: ON DAYS 22, 29, 32, PREVIOUS PROTOCOL, RE-INDUCTION
     Route: 065
  53. METHOTREXATE [Suspect]
     Dosage: PREVIOUS PROTOCOL, CONTINUATION PHASE
     Route: 037
  54. METHOTREXATE [Suspect]
     Dosage: AGE DEPENDENT DOSE ON DAYS 1, 15 (EXTRA ON 8, 22), CURRENT PROTOCOL, REMISSION-INDUCTION
     Route: 037
  55. DEXAMETHASONE [Suspect]
     Dosage: DAYS 1-8, 15-22, CURRENT PROTOCOL, REMISSION-INDUCTION
     Route: 065

REACTIONS (8)
  - NEUROPATHY PERIPHERAL [None]
  - NEUTROPENIC SEPSIS [None]
  - OFF LABEL USE [None]
  - CONVULSION [None]
  - CEREBROVASCULAR ACCIDENT [None]
  - PANCREATITIS [None]
  - KETOACIDOSIS [None]
  - HYPERGLYCAEMIA [None]
